FAERS Safety Report 21304275 (Version 1)
Quarter: 2022Q3

REPORT INFORMATION
  Report Type: Spontaneous
  Country: LK (occurrence: LK)
  Receive Date: 20220907
  Receipt Date: 20220907
  Transmission Date: 20221027
  Serious: Yes (Life-Threatening)
  Sender: FDA-Public Use
  Company Number: LK-Merck Healthcare KGaA-9348453

PATIENT
  Age: 36 Year
  Sex: Female

DRUGS (1)
  1. ERBITUX [Suspect]
     Active Substance: CETUXIMAB
     Indication: Colon cancer
     Dosage: 350 MG, UNKNOWN
     Route: 042
     Dates: start: 20220809

REACTIONS (4)
  - Chest pain [Unknown]
  - Dyspnoea [Unknown]
  - Pruritus [Unknown]
  - Hypotension [Unknown]

NARRATIVE: CASE EVENT DATE: 20220809
